FAERS Safety Report 15653241 (Version 1)
Quarter: 2018Q4

REPORT INFORMATION
  Report Type: Spontaneous
  Country: FR (occurrence: FR)
  Receive Date: 20181123
  Receipt Date: 20181123
  Transmission Date: 20190205
  Serious: Yes (Hospitalization)
  Sender: FDA-Public Use
  Company Number: FR-TEVA-2018-FR-977425

PATIENT
  Age: 74 Year
  Sex: Female

DRUGS (8)
  1. HALDOL [Suspect]
     Active Substance: HALOPERIDOL
     Indication: PSYCHOTIC DISORDER
     Dosage: 2.5 KU DAILY;
     Route: 048
     Dates: start: 201802
  2. AKINETON [Suspect]
     Active Substance: BIPERIDEN HYDROCHLORIDE
     Indication: PRODUCT USED FOR UNKNOWN INDICATION
     Dosage: UNSPECIFIED
     Route: 065
     Dates: start: 20180414, end: 20180422
  3. PREGABALINE [Concomitant]
     Active Substance: PREGABALIN
     Dosage: 25 MILLIGRAM DAILY;
     Route: 048
  4. TERCIAN 100 MG, COMPRIM? PELLICUL? S?CABLE [Suspect]
     Active Substance: CYAMEMAZINE
     Indication: PSYCHOTIC DISORDER
     Dosage: 1 DOSAGE FORMS DAILY;
     Route: 048
     Dates: start: 201802
  5. PAROXETINE. [Suspect]
     Active Substance: PAROXETINE
     Indication: PSYCHOTIC DISORDER
     Dosage: 10 MILLIGRAM DAILY;
     Route: 048
  6. FENOFIBRATE. [Concomitant]
     Active Substance: FENOFIBRATE
     Dosage: 160 MILLIGRAM DAILY;
     Route: 048
  7. HALDOL [Suspect]
     Active Substance: HALOPERIDOL
     Indication: PSYCHOTIC DISORDER
     Dosage: 1 MILLIGRAM DAILY;
     Route: 048
  8. LOVENOX [Concomitant]
     Active Substance: ENOXAPARIN SODIUM
     Dosage: 1 DOSAGE FORMS DAILY;
     Route: 058

REACTIONS (4)
  - Confusional state [Recovered/Resolved]
  - Tremor [Recovered/Resolved]
  - Dyskinesia [Recovered/Resolved]
  - Somnolence [Recovered/Resolved]

NARRATIVE: CASE EVENT DATE: 20180421
